FAERS Safety Report 6554474-0 (Version None)
Quarter: 2010Q1

REPORT INFORMATION
  Report Type: 
  Country: None (occurrence: None)
  Receive Date: 20100127
  Receipt Date: 20100118
  Transmission Date: 20100710
  Serious: Yes (Other)
  Sender: FDA-Public Use
  Company Number: US-B.I. PHARMACEUTICALS,INC./RIDGEFIELD-2010-RO-00053RO

PATIENT
  Age: 8 Week
  Sex: Female

DRUGS (3)
  1. PROPRANOLOL [Suspect]
     Indication: HAEMANGIOMA
  2. CORTICOSTEROID [Suspect]
     Indication: HAEMANGIOMA
  3. RANITIDINE [Suspect]
     Indication: HAEMANGIOMA

REACTIONS (2)
  - BRADYCARDIA [None]
  - HYPOTENSION [None]
